FAERS Safety Report 25398168 (Version 1)
Quarter: 2025Q2

REPORT INFORMATION
  Report Type: Spontaneous
  Country: US (occurrence: US)
  Receive Date: 20250604
  Receipt Date: 20250604
  Transmission Date: 20250716
  Serious: No
  Sender: SANOFI AVENTIS
  Company Number: US-SA-2025SA157536

PATIENT
  Age: 22 Year
  Sex: Female
  Weight: 68.18 kg

DRUGS (3)
  1. DUPIXENT [Suspect]
     Active Substance: DUPILUMAB
     Indication: Dermatitis atopic
     Route: 058
     Dates: start: 20250518, end: 20250518
  2. EFFEXOR [Concomitant]
     Active Substance: VENLAFAXINE HYDROCHLORIDE
  3. ALLEGRA ALLERGY [Concomitant]
     Active Substance: FEXOFENADINE HYDROCHLORIDE

REACTIONS (6)
  - Injection site vesicles [Recovered/Resolved]
  - Injection site discolouration [Unknown]
  - Needle issue [Unknown]
  - Eczema [Unknown]
  - Pruritus [Unknown]
  - Skin warm [Unknown]

NARRATIVE: CASE EVENT DATE: 20250518
